FAERS Safety Report 18628057 (Version 1)
Quarter: 2020Q4

REPORT INFORMATION
  Report Type: Spontaneous
  Country: US (occurrence: US)
  Receive Date: 20201216
  Receipt Date: 20201216
  Transmission Date: 20210114
  Serious: No
  Sender: FDA-Public Use
  Company Number: None

PATIENT
  Age: 79 Year
  Sex: Male

DRUGS (1)
  1. WARFARIN (WARFARIN NA (EXELAN) 5MG TAB) [Suspect]
     Active Substance: WARFARIN SODIUM
     Indication: DEEP VEIN THROMBOSIS
     Route: 048
     Dates: start: 20201006

REACTIONS (7)
  - Blood urine present [None]
  - Haemoglobin decreased [None]
  - Constipation [None]
  - Haemorrhage [None]
  - Anaemia [None]
  - Discomfort [None]
  - Abdominal pain [None]

NARRATIVE: CASE EVENT DATE: 20201006
